FAERS Safety Report 5614797-6 (Version None)
Quarter: 2008Q1

REPORT INFORMATION
  Report Type: 
  Country: None (occurrence: None)
  Receive Date: 20080111
  Receipt Date: 20070709
  Transmission Date: 20080703
  Serious: Yes (Other)
  Sender: FDA-Public Use
  Company Number: HQWYE976910JUL07

PATIENT
  Age: 73 Year
  Sex: Female
  Weight: 51.76 kg

DRUGS (6)
  1. PREMPRO [Suspect]
     Indication: MENOPAUSAL SYMPTOMS
     Dosage: 0.3MG/1.5MG, ORAL; 0.625MG/2.5MG, ORAL
     Route: 048
     Dates: start: 19980101, end: 20050301
  2. PREMPRO [Suspect]
     Indication: OSTEOPOROSIS
     Dosage: 0.3MG/1.5MG, ORAL; 0.625MG/2.5MG, ORAL
     Route: 048
     Dates: start: 19980101, end: 20050301
  3. PREMPRO [Suspect]
     Indication: MENOPAUSAL SYMPTOMS
     Dosage: 0.3MG/1.5MG, ORAL; 0.625MG/2.5MG, ORAL
     Route: 048
     Dates: start: 20050301
  4. PREMPRO [Suspect]
     Indication: OSTEOPOROSIS
     Dosage: 0.3MG/1.5MG, ORAL; 0.625MG/2.5MG, ORAL
     Route: 048
     Dates: start: 20050301
  5. FOSAMAX [Concomitant]
  6. LOVASTATIN [Concomitant]

REACTIONS (1)
  - OVARIAN CANCER METASTATIC [None]
